FAERS Safety Report 8890159 (Version 1)
Quarter: 2012Q4

REPORT INFORMATION
  Report Type: Spontaneous
  Country: US (occurrence: None)
  Receive Date: 20121105
  Receipt Date: 20121105
  Transmission Date: 20130627
  Serious: Yes (Life-Threatening)
  Sender: FDA-Public Use
  Company Number: None

PATIENT
  Age: 85 Year
  Sex: Female
  Weight: 79 kg

DRUGS (8)
  1. CLOPIDOGREL [Suspect]
     Dates: start: 20121025, end: 20121025
  2. ISOSORBIDE [Concomitant]
  3. LEVOTHYROXINE [Concomitant]
  4. LISINOPRIL [Concomitant]
  5. BYSTOLIC [Concomitant]
  6. SINGULAIR [Concomitant]
  7. SIMVASTATIN [Concomitant]
  8. HYDROCODONE/APAP [Concomitant]

REACTIONS (1)
  - Angioedema [None]
